FAERS Safety Report 10653688 (Version 1)
Quarter: 2014Q4

REPORT INFORMATION
  Report Type: Spontaneous
  Country: US (occurrence: US)
  Receive Date: 20141216
  Receipt Date: 20141216
  Transmission Date: 20150529
  Serious: Yes (Other)
  Sender: FDA-Public Use
  Company Number: US-AUROBINDO-AUR-APL-2014-12894

PATIENT
  Age: 35 Year
  Sex: Male

DRUGS (1)
  1. OLANZAPINE. [Suspect]
     Active Substance: OLANZAPINE
     Indication: PRODUCT USED FOR UNKNOWN INDICATION
     Dosage: UNK
     Route: 065

REACTIONS (22)
  - Decreased activity [Recovered/Resolved]
  - Musculoskeletal stiffness [Recovered/Resolved]
  - Drooling [Recovered/Resolved]
  - Affect lability [Recovered/Resolved]
  - Confusional state [Recovered/Resolved]
  - Dysarthria [Recovered/Resolved]
  - Vomiting [Recovered/Resolved]
  - Extrapyramidal disorder [Recovered/Resolved]
  - Tangentiality [Recovered/Resolved]
  - Mutism [Recovered/Resolved]
  - Encephalitis autoimmune [Recovered/Resolved]
  - Depression [Recovered/Resolved]
  - Catatonia [Recovered/Resolved]
  - Abnormal behaviour [Recovered/Resolved]
  - Night sweats [Recovered/Resolved]
  - Impulsive behaviour [Recovered/Resolved]
  - Speech disorder [Recovered/Resolved]
  - Suicidal ideation [Recovered/Resolved]
  - Grandiosity [Recovered/Resolved]
  - Posturing [Recovered/Resolved]
  - Pyrexia [Recovered/Resolved]
  - Staring [Recovered/Resolved]
